FAERS Safety Report 13027504 (Version 1)
Quarter: 2016Q4

REPORT INFORMATION
  Report Type: Spontaneous
  Country: US (occurrence: US)
  Receive Date: 20161214
  Receipt Date: 20161214
  Transmission Date: 20170207
  Serious: Yes (Hospitalization)
  Sender: FDA-Public Use
  Company Number: US-MALLINCKRODT-T201606351

PATIENT
  Age: 52 Year
  Sex: Male

DRUGS (1)
  1. METHADONE [Suspect]
     Active Substance: METHADONE HYDROCHLORIDE
     Indication: SUBSTANCE DEPENDENCE
     Dosage: UNK, UNK
     Route: 048

REACTIONS (3)
  - Off label use [Unknown]
  - Generalised oedema [Recovering/Resolving]
  - Non-cardiogenic pulmonary oedema [Recovering/Resolving]
